FAERS Safety Report 4606943-8 (Version None)
Quarter: 2005Q1

REPORT INFORMATION
  Report Type: 
  Country: None (occurrence: None)
  Receive Date: 20050310
  Receipt Date: 20050302
  Transmission Date: 20050727
  Serious: No
  Sender: FDA-Public Use
  Company Number: 2005UW03353

PATIENT

DRUGS (3)
  1. ATENOLOL [Suspect]
  2. VERAPAMIL [Suspect]
  3. KETEK [Concomitant]

REACTIONS (2)
  - CARDIAC ARREST [None]
  - DRUG INTERACTION [None]
